FAERS Safety Report 4393753-2 (Version None)
Quarter: 2004Q3

REPORT INFORMATION
  Report Type: 
  Country: None (occurrence: None)
  Receive Date: 20040701
  Receipt Date: 20040623
  Transmission Date: 20050211
  Serious: Yes (Hospitalization)
  Sender: FDA-Public Use
  Company Number: PERI00204002118

PATIENT
  Age: 30 Year
  Sex: Female

DRUGS (5)
  1. COVERSYL (PERINDOPRIL) [Suspect]
     Indication: CEREBROVASCULAR ACCIDENT PROPHYLAXIS
     Dosage: SEE IMAGE PO
     Route: 048
     Dates: start: 20040602, end: 20040607
  2. COVERSYL (PERINDOPRIL) [Suspect]
     Indication: CEREBROVASCULAR ACCIDENT PROPHYLAXIS
     Dosage: SEE IMAGE PO
     Route: 048
     Dates: start: 20040608, end: 20040620
  3. PRAVACHOL [Concomitant]
  4. ORTHO-CEPT (DESOGESTREL) [Concomitant]
  5. ANTIBIOTICS (ANTIBIOTICS) [Concomitant]

REACTIONS (4)
  - DIARRHOEA [None]
  - LOSS OF CONSCIOUSNESS [None]
  - OVARIAN CYST RUPTURED [None]
  - TREMOR [None]
